FAERS Safety Report 10220956 (Version 1)
Quarter: 2014Q2

REPORT INFORMATION
  Report Type: Spontaneous
  Country: FR (occurrence: FR)
  Receive Date: 20140606
  Receipt Date: 20140606
  Transmission Date: 20141212
  Serious: Yes (Death, Life-Threatening)
  Sender: FDA-Public Use
  Company Number: FR-JNJFOC-20140600260

PATIENT
  Age: 78 Year
  Sex: Male

DRUGS (7)
  1. XARELTO [Suspect]
     Indication: PRODUCT USED FOR UNKNOWN INDICATION
     Route: 048
     Dates: end: 20140314
  2. CRESTOR [Concomitant]
     Route: 065
  3. ATACAND [Concomitant]
     Route: 065
  4. LASILIX [Concomitant]
     Route: 065
  5. DISCOTRINE [Concomitant]
     Route: 065
  6. NEO-MERCAZOLE [Concomitant]
     Route: 065
  7. SOTALOL [Concomitant]
     Route: 065

REACTIONS (2)
  - Cardiac arrest [Fatal]
  - Epistaxis [Fatal]
